FAERS Safety Report 8107561-X (Version None)
Quarter: 2011Q4

REPORT INFORMATION
  Report Type: 
  Country: None (occurrence: None)
  Receive Date: 20111223
  Receipt Date: 20101207
  Transmission Date: 20120403
  Serious: Yes (Hospitalization)
  Sender: FDA-Public Use
  Company Number: 313914

PATIENT
  Age: 49 Year
  Sex: Female
  Weight: 76.2 kg

DRUGS (10)
  1. LEVEMIR [Suspect]
     Indication: TYPE 2 DIABETES MELLITUS
     Dosage: 15 IU, BID, SUBCUTANEOUS
     Route: 058
  2. HUMALOG [Concomitant]
  3. PREDNISOLONE [Concomitant]
  4. LYRICA (PREBABALIN) [Concomitant]
  5. SIMVASTATIN [Concomitant]
  6. LORATADINE [Concomitant]
  7. ZETIA [Concomitant]
  8. ASPIRIN [Concomitant]
  9. LISINOPRIL [Concomitant]
  10. KETOROLAC TROMETHAMINE [Concomitant]

REACTIONS (1)
  - HYPOGLYCAEMIA [None]
